FAERS Safety Report 9507301 (Version 1)
Quarter: 2013Q3

REPORT INFORMATION
  Report Type: Spontaneous
  Country: US (occurrence: US)
  Receive Date: 20130909
  Receipt Date: 20130909
  Transmission Date: 20140515
  Serious: Yes (Hospitalization)
  Sender: FDA-Public Use
  Company Number: US-JNJFOC-20130814599

PATIENT
  Age: 65 Year
  Sex: Male
  Weight: 81.65 kg

DRUGS (3)
  1. STELARA [Suspect]
     Indication: PSORIASIS
     Route: 030
     Dates: start: 201208
  2. NORVASC [Concomitant]
     Indication: PRODUCT USED FOR UNKNOWN INDICATION
     Route: 048
     Dates: start: 20130424
  3. METOPROLOL [Concomitant]
     Indication: PRODUCT USED FOR UNKNOWN INDICATION
     Route: 048
     Dates: start: 20130424

REACTIONS (3)
  - Atrial fibrillation [Recovered/Resolved]
  - Psoriasis [Not Recovered/Not Resolved]
  - Incorrect route of drug administration [Unknown]
